FAERS Safety Report 9299852 (Version 1)
Quarter: 2013Q1

REPORT INFORMATION
  Report Type: Spontaneous
  Country: US (occurrence: US)
  Receive Date: 20130107
  Receipt Date: 20130107
  Transmission Date: 20140127
  Serious: No
  Sender: FDA-Public Use
  Company Number: PHHY2011US117409

PATIENT
  Age: 56 Year
  Sex: Female

DRUGS (16)
  1. GILENYA [Suspect]
     Indication: MULTIPLE SCLEROSIS
     Route: 048
     Dates: start: 20110407
  2. CALTRATE (CALCIUM CARBONATE) TABLET [Concomitant]
  3. XANAX (ALPRAZOLAM) TABLET [Concomitant]
  4. LASIX (FUROSEMIDE) TABLET [Concomitant]
  5. NEURONTIN (GABAPENTIN) CAPSULE [Concomitant]
  6. TRAMADOL HYDROCHLORIDE (TRAMADOL HYDROCHLORIDE) TABLET [Concomitant]
  7. PRAVASTATIN (PRAVASTATIN) TABLET [Concomitant]
  8. FENTANYL (FENTANYL) DISPERSIBLE TABLET [Concomitant]
  9. STOOL SOFTENER (DOCUSATE SODIUM) CAPSULE [Concomitant]
  10. WELLBUTRIN (BUPROPION HYDROCHLORIDE) [Concomitant]
  11. OXYBUTYNIN (OXYBUTYNIN) TABLET [Concomitant]
  12. FISH OIL (FISH OIL) CAPSULE [Concomitant]
  13. MIRTAZAPINE (MIRTAZAPINE) TABLET [Concomitant]
  14. DAILY MULTIVITAMIN (VITAMINS NOS) TABLET [Concomitant]
  15. BACLOFEN (BACLOFEN) [Concomitant]
  16. DUROGESIC (FENTANYL) [Concomitant]

REACTIONS (4)
  - Hepatic enzyme abnormal [None]
  - White blood cell count decreased [None]
  - Liver function test abnormal [None]
  - Inappropriate schedule of drug administration [None]
